FAERS Safety Report 8338547-8 (Version None)
Quarter: 2012Q2

REPORT INFORMATION
  Report Type: 
  Country: None (occurrence: None)
  Receive Date: 20120504
  Receipt Date: 20120425
  Transmission Date: 20120825
  Serious: Yes (Other)
  Sender: FDA-Public Use
  Company Number: VE-GENZYME-POMP-1002089

PATIENT
  Sex: Male
  Weight: 27 kg

DRUGS (2)
  1. CLOBAZAM [Suspect]
     Indication: CONVULSION
     Dosage: UNK
     Dates: end: 20120218
  2. MYOZYME [Suspect]
     Indication: GLYCOGEN STORAGE DISEASE TYPE II
     Dosage: 20 MG/KG, Q2W
     Route: 042
     Dates: start: 20050814

REACTIONS (10)
  - CONVULSION [None]
  - MOTOR DYSFUNCTION [None]
  - LUNG INFECTION [None]
  - RESPIRATORY DISORDER [None]
  - ASTHENIA [None]
  - KYPHOSCOLIOSIS [None]
  - MALNUTRITION [None]
  - RESPIRATORY TRACT INFECTION [None]
  - SPEECH DISORDER [None]
  - DECREASED APPETITE [None]
